FAERS Safety Report 9188178 (Version 2)
Quarter: 2012Q4

REPORT INFORMATION
  Report Type: 
  Country: US (occurrence: US)
  Receive Date: 20121126
  Receipt Date: 20121128
  Transmission Date: 20130627
  Serious: Yes (Other)
  Sender: FDA-Public Use
  Company Number: US-RB-046803-12

PATIENT
  Age: 53 Year
  Sex: Female

DRUGS (5)
  1. MUCINEX FAST MAX ADULT COLD + SINUS (ACETAMINOPHEN) [Suspect]
     Indication: PRODUCT USED FOR UNKNOWN INDICATION
     Dosage: 1 dose(one capful)
     Route: 048
     Dates: start: 20121116
  2. MUCINEX FAST MAX ADULT COLD + SINUS (GUAIFENESIN) [Suspect]
  3. MUCINEX FAST MAX ADULT COLD + SINUS (PHENYLEPHRINE HYDROCHLORIDE) [Suspect]
  4. CHOLESTEROL [Concomitant]
     Indication: PRODUCT USED FOR UNKNOWN INDICATION
  5. PHENOBARBITAL [Concomitant]
     Indication: CONVULSION

REACTIONS (1)
  - Convulsion [Recovered/Resolved]
